FAERS Safety Report 4882314-4 (Version None)
Quarter: 2006Q1

REPORT INFORMATION
  Report Type: 
  Country: None (occurrence: None)
  Receive Date: 20060112
  Receipt Date: 20051229
  Transmission Date: 20060701
  Serious: Yes (Life-Threatening, Hospitalization, Other)
  Sender: FDA-Public Use
  Company Number: 2005-02100

PATIENT
  Age: 54 Year
  Sex: Female

DRUGS (5)
  1. VELCADE [Suspect]
     Indication: WALDENSTROM'S MACROGLOBULINAEMIA
     Dosage: 1.30 MG/M2, 2/WEEK, INTRAVENOUS; 1.00 MG/M2, 2/WEEK, INTRAVENOUS
     Route: 042
     Dates: start: 20040312
  2. VELCADE [Suspect]
     Indication: WALDENSTROM'S MACROGLOBULINAEMIA
     Dosage: 1.30 MG/M2, 2/WEEK, INTRAVENOUS; 1.00 MG/M2, 2/WEEK, INTRAVENOUS
     Route: 042
     Dates: start: 20040405
  3. VANCOMYCIN [Concomitant]
  4. ZOMETA [Concomitant]
  5. LEVAQUIN [Concomitant]

REACTIONS (13)
  - ASTHENIA [None]
  - BACK PAIN [None]
  - CENTRAL LINE INFECTION [None]
  - CHILLS [None]
  - INFECTION IN AN IMMUNOCOMPROMISED HOST [None]
  - MYALGIA [None]
  - NECK PAIN [None]
  - PYREXIA [None]
  - SCAN ABNORMAL [None]
  - SHOULDER PAIN [None]
  - STAPHYLOCOCCAL INFECTION [None]
  - VASCULITIS [None]
  - WHITE BLOOD CELL SCAN [None]
